FAERS Safety Report 4370798-X (Version None)
Quarter: 2004Q2

REPORT INFORMATION
  Report Type: 
  Country: None (occurrence: None)
  Receive Date: 20040601
  Receipt Date: 20040520
  Transmission Date: 20050107
  Serious: Yes (Hospitalization)
  Sender: FDA-Public Use
  Company Number: 2004GB01150

PATIENT
  Age: 62 Year
  Sex: Male

DRUGS (4)
  1. GEFITINIB [Suspect]
     Indication: CARCINOMA
     Dosage: 500 MG DAILY PO
     Route: 048
  2. GEFITINIB [Suspect]
     Indication: CARCINOMA
     Dosage: 250 MG DAILY PO
     Route: 048
     Dates: start: 20040412, end: 20040428
  3. FENTANYL [Concomitant]
  4. ORAMORPH SR [Concomitant]

REACTIONS (2)
  - DIARRHOEA [None]
  - RECTAL HAEMORRHAGE [None]
